FAERS Safety Report 8339421 (Version 13)
Quarter: 2013Q3

REPORT INFORMATION
  Report Type: Spontaneous
  Country: US (occurrence: US)
  Receive Date: 20120117
  Receipt Date: 20130724
  Transmission Date: 20140515
  Serious: Yes (Other)
  Sender: FDA-Public Use
  Company Number: US-PFIZER INC-2012009365

PATIENT
  Age: 49 Year
  Sex: Female
  Weight: 79.4 kg

DRUGS (40)
  1. XALKORI [Suspect]
     Indication: NON-SMALL CELL LUNG CANCER
     Dosage: 250 MG, 2X/DAY
     Route: 048
     Dates: start: 20120102
  2. XALKORI [Suspect]
     Indication: LUNG NEOPLASM MALIGNANT
     Dosage: 250 MG, 2X/DAY
     Route: 048
     Dates: start: 20120107
  3. XALKORI [Suspect]
     Dosage: 250 MG, 2X/DAY, 4 WEEKS THUS FAR
     Route: 048
     Dates: start: 20120111
  4. XALKORI [Suspect]
     Dosage: 250 MG, 2X/DAY
     Route: 048
     Dates: start: 201206
  5. XALKORI [Suspect]
     Dosage: 250 MG, 2X/DAY
     Route: 048
     Dates: start: 20120803
  6. ADVAIR DISKUS [Concomitant]
     Dosage: 250-50MCG, 2X/DAY (TAKE 1 PUFF BY INHALATION BID)
  7. ADVAIR DISKUS [Concomitant]
     Dosage: 250-50MCG, TAKE 1 PUFF BY INHALATION DAILY
  8. AMILORIDE HYDROCHLORIDE [Concomitant]
     Dosage: 5 MG, DAILY (5 MG TAKE 1 DAILY)
     Route: 048
  9. CYMBALTA [Concomitant]
     Dosage: 30 MG, UNK
     Route: 048
  10. EVAMIST [Concomitant]
     Dosage: 1.53/SPRAY DAILY (NON-AEROSOL, TAKE 1 SPRAY TOPICAL DAILY, INSTRUCTIONS: 1-2 SPRAYS DAILY)
     Route: 061
  11. FOLIC ACID [Concomitant]
     Dosage: 1 MG, 1X/DAY
     Route: 048
  12. LANSOPRAZOLE [Concomitant]
     Dosage: 30 MG, 1X/DAY (DISPENSE 90MG)
     Route: 048
  13. LASIX [Concomitant]
     Dosage: 20 MG, UNK
     Route: 048
  14. LORAZEPAM [Concomitant]
     Dosage: 0.5 MG (TAKE 1 PO), AS NEEDED
     Route: 048
  15. LYRICA [Concomitant]
     Dosage: 50 MG, UNK
     Route: 048
  16. MEDROL [Concomitant]
     Dosage: 4 MG, UNK
     Route: 048
  17. TRAZODONE [Concomitant]
     Dosage: 100 MG, 1X/DAY (50MG 2 TABS QHS)
  18. ONDANSETRON HYDROCHLORIDE [Concomitant]
     Indication: NAUSEA
     Dosage: 8 MG, AS NEEDED (8 MG TAKE 1 Q8H PRN)
     Route: 048
  19. OXYCODONE HYDROCHLORIDE [Concomitant]
     Indication: PAIN
     Dosage: 5 MG 1-2 , Q3HR PRN
     Route: 048
  20. OXYCONTIN [Concomitant]
     Dosage: 10MG, 1 EVERY 12 HOURS (FOR TOTAL OF 50MG)
     Route: 048
  21. OXYCONTIN [Concomitant]
     Dosage: 10 MG, 2X/DAY
     Route: 048
  22. PATADAY [Concomitant]
     Dosage: 0.2 %, AS NEEDED (0.2 % DROPS TAKE 1 DROP(S) O.U. (BOTH EYES), PRN)
     Route: 047
  23. SINGULAIR [Concomitant]
     Dosage: 10 MG, TABLET TAKE 1 DAILY
     Route: 048
  24. TUMS [Concomitant]
     Dosage: 200 (500) MG (TAKE 1 AS DIRECTED)
     Route: 048
  25. XANAX [Concomitant]
     Indication: ANXIETY
     Dosage: 0.25 MG, TAKE 1 TID ,PRN
     Route: 048
  26. KLONOPIN [Concomitant]
     Dosage: UNK
  27. BACTROBAN [Concomitant]
     Dosage: TAKE 1 UNITS TOPICAL DAILY PRN
     Route: 061
  28. BUPROPION HYDROCHLORIDE [Concomitant]
     Dosage: 300 MG, 1X/DAY (TAKE 1, DAILY)
     Route: 048
  29. CARAFATE [Concomitant]
     Dosage: 1 G/10 ML (TAKE 1 G PO QID PRN)
     Route: 048
  30. CLONAZEPAM [Concomitant]
     Dosage: 1 MG TABLET, 0.5 TABLET PO 7PM, THEN 1-2 TABLET PO QHS AS DIRECTED
     Route: 048
  31. MAXALT [Concomitant]
     Indication: MIGRAINE
     Dosage: 5 MG, 1X/DAY AS NEEDED
     Route: 048
  32. LEVSIN [Concomitant]
     Indication: ABDOMINAL PAIN UPPER
     Dosage: 0.125 MG (TAKE 1 TABLET, PO Q4H PRN
     Route: 048
  33. LUNESTA [Concomitant]
     Dosage: 3 MG,TAKE 1 QHS PRN SLEEP
     Route: 048
  34. MELATONIN [Concomitant]
     Dosage: 3 MG, TAKE 2 TABLETS QHS
     Route: 048
  35. METAMUCIL [Concomitant]
     Dosage: 0.52G CAPSULE(S) TAKE 1-2 DAILY
     Route: 048
  36. MIRALAX [Concomitant]
     Dosage: 17 G, 1X/DAY
     Route: 048
  37. PREVACID [Concomitant]
     Dosage: 15 MG, TAKE 1 PO DAILY PRN
  38. PROBIOTICS [Concomitant]
     Dosage: CAPSULE TAKE 1 PO DAILY
     Route: 048
  39. PROMETHAZINE HYDROCHLORIDE [Concomitant]
     Dosage: 12.5 MG, TAKE 1 TABLET PRN
     Route: 048
  40. RELISTOR [Concomitant]
     Dosage: 12 MG, 12 MG QOD PRN
     Dates: start: 20120229, end: 20120829

REACTIONS (27)
  - Mental impairment [Unknown]
  - Dry mouth [Not Recovered/Not Resolved]
  - Malaise [Unknown]
  - Influenza like illness [Unknown]
  - Oesophageal pain [Unknown]
  - Constipation [Recovering/Resolving]
  - Oesophagitis [Recovered/Resolved]
  - Nausea [Unknown]
  - Dyspepsia [Unknown]
  - Vomiting [Unknown]
  - Abdominal pain upper [Unknown]
  - Asthenia [Unknown]
  - Muscle spasms [Unknown]
  - Myalgia [Unknown]
  - Muscle tightness [Unknown]
  - Headache [Unknown]
  - Dehydration [Recovering/Resolving]
  - Fatigue [Unknown]
  - Balance disorder [Unknown]
  - Coordination abnormal [Unknown]
  - Dizziness [Unknown]
  - Osteosclerosis [Unknown]
  - Bone marrow disorder [Unknown]
  - Disease progression [Unknown]
  - Non-small cell lung cancer [Unknown]
  - Visual impairment [Unknown]
  - Pleuritic pain [Unknown]
